FAERS Safety Report 5449754-6 (Version None)
Quarter: 2007Q3

REPORT INFORMATION
  Report Type: 
  Country: None (occurrence: None)
  Receive Date: 20070907
  Receipt Date: 20070907
  Transmission Date: 20080115
  Serious: Yes (Hospitalization)
  Sender: FDA-Public Use
  Company Number: None

PATIENT
  Sex: Female
  Weight: 76.6 kg

DRUGS (7)
  1. PACLITAXEL [Suspect]
     Indication: FALLOPIAN TUBE CANCER
     Dosage: 175MG/M2 Q 3 WEEKS IV
     Route: 042
     Dates: start: 20070813, end: 20070904
  2. DASATINIB [Concomitant]
  3. CARBOPLATIN [Concomitant]
  4. CIMETIDINE HCL [Concomitant]
  5. DEXAMETHASONE 0.5MG TAB [Concomitant]
  6. DIPHENHYDRAMINE AND ONDANSETRON [Concomitant]
  7. ONDANSETRON [Concomitant]

REACTIONS (3)
  - CHEST DISCOMFORT [None]
  - DYSPNOEA [None]
  - INFUSION RELATED REACTION [None]
